FAERS Safety Report 19410446 (Version 1)
Quarter: 2021Q2

REPORT INFORMATION
  Report Type: Spontaneous
  Country: US (occurrence: US)
  Receive Date: 20210613
  Receipt Date: 20210613
  Transmission Date: 20210717
  Serious: No
  Sender: FDA-Public Use
  Company Number: None

PATIENT
  Age: 28 Year
  Sex: Female
  Weight: 56.25 kg

DRUGS (1)
  1. MIDOL COMPLETE [Suspect]
     Active Substance: ACETAMINOPHEN\CAFFEINE\PYRILAMINE MALEATE
     Indication: MUSCLE SPASMS
     Dosage: ?
     Route: 048
     Dates: start: 20210609, end: 20210612

REACTIONS (4)
  - Cold sweat [None]
  - Dizziness [None]
  - Confusional state [None]
  - Loss of consciousness [None]

NARRATIVE: CASE EVENT DATE: 20210613
